FAERS Safety Report 15128857 (Version 1)
Quarter: 2018Q3

REPORT INFORMATION
  Report Type: Spontaneous
  Country: AU (occurrence: AU)
  Receive Date: 20180711
  Receipt Date: 20180711
  Transmission Date: 20181010
  Serious: Yes (Other)
  Sender: FDA-Public Use
  Company Number: AU-BAXTER-2018BAX017201

PATIENT
  Age: 10 Year
  Sex: Male

DRUGS (6)
  1. STERILE WATER [Suspect]
     Active Substance: WATER
     Indication: MEDICATION DILUTION
     Dosage: WITHOUT PREMEDICATION
     Route: 042
     Dates: start: 20180608, end: 20180610
  2. ETOPOSIDE. [Suspect]
     Active Substance: ETOPOSIDE
     Indication: CHEMOTHERAPY
     Dosage: AS PHOSPHATE (WITHOUT PREMEDICATION)
     Route: 042
     Dates: start: 20180608, end: 20180610
  3. ETOPOSIDE. [Suspect]
     Active Substance: ETOPOSIDE
     Dosage: AS PHOSPHATE (WITH PREMEDICATION)
     Route: 042
     Dates: start: 20180610, end: 20180612
  4. STERILE WATER [Suspect]
     Active Substance: WATER
     Dosage: WITH PREMEDICATION
     Route: 042
     Dates: start: 20180610, end: 20180612
  5. BAXTER 0.9% SODIUM CHLORIDE 9G_L INJECTION BP BAG AHB1324 [Suspect]
     Active Substance: SODIUM CHLORIDE
     Indication: MEDICATION DILUTION
     Dosage: WITHOUT PREMEDICATION
     Route: 042
     Dates: start: 20180608, end: 20180610
  6. BAXTER 0.9% SODIUM CHLORIDE 9G_L INJECTION BP BAG AHB1324 [Suspect]
     Active Substance: SODIUM CHLORIDE
     Dosage: WITH PREMEDICATION
     Route: 042
     Dates: start: 20180610, end: 20180612

REACTIONS (7)
  - Chest pain [Unknown]
  - Headache [Unknown]
  - Dyspnoea [Recovered/Resolved with Sequelae]
  - Rash [Unknown]
  - Throat tightness [Recovered/Resolved with Sequelae]
  - Erythema [Unknown]
  - Flushing [Recovered/Resolved with Sequelae]

NARRATIVE: CASE EVENT DATE: 20180608
